FAERS Safety Report 4263063-2 (Version None)
Quarter: 2004Q1

REPORT INFORMATION
  Report Type: 
  Country: None (occurrence: None)
  Receive Date: 20040105
  Receipt Date: 20031226
  Transmission Date: 20041129
  Serious: Yes (Life-Threatening)
  Sender: FDA-Public Use
  Company Number: PHBS2003JP14453

PATIENT
  Age: 70 Year
  Sex: Male

DRUGS (2)
  1. VOLTAREN [Suspect]
     Indication: BACK PAIN
     Dosage: 50 MG, BID
     Route: 054
     Dates: start: 20031001, end: 20031101
  2. VOLTAREN [Suspect]
     Dosage: 400 MG/DAY
     Route: 054
     Dates: start: 20031101, end: 20031223

REACTIONS (2)
  - MEDICATION ERROR [None]
  - PULMONARY OEDEMA [None]
